FAERS Safety Report 9602053 (Version 1)
Quarter: 2013Q4

REPORT INFORMATION
  Report Type: Spontaneous
  Country: AU (occurrence: AU)
  Receive Date: 20131007
  Receipt Date: 20131007
  Transmission Date: 20140711
  Serious: Yes (Death)
  Sender: FDA-Public Use
  Company Number: PHHY2013AU110939

PATIENT
  Sex: Male

DRUGS (1)
  1. DEFERASIROX [Suspect]
     Indication: THALASSAEMIA
     Dosage: UNK UKN, UNK

REACTIONS (2)
  - Cardiac failure [Fatal]
  - Arrhythmia [Fatal]
